FAERS Safety Report 7266742-8 (Version None)
Quarter: 2011Q1

REPORT INFORMATION
  Report Type: 
  Country: None (occurrence: None)
  Receive Date: 20110201
  Receipt Date: 20110121
  Transmission Date: 20110831
  Serious: No
  Sender: FDA-Public Use
  Company Number: US-BIOGENIDEC-2011BI002604

PATIENT
  Age: 53 Year
  Sex: Male

DRUGS (1)
  1. TYSABRI [Suspect]
     Indication: MULTIPLE SCLEROSIS
     Route: 042
     Dates: start: 20101230

REACTIONS (7)
  - APHONIA [None]
  - RHINORRHOEA [None]
  - THROAT IRRITATION [None]
  - DIARRHOEA [None]
  - FOOD CRAVING [None]
  - FAECES DISCOLOURED [None]
  - FATIGUE [None]
